FAERS Safety Report 9447722 (Version 1)
Quarter: 2013Q3

REPORT INFORMATION
  Report Type: Spontaneous
  Country: FR (occurrence: None)
  Receive Date: 20130805
  Receipt Date: 20130805
  Transmission Date: 20140515
  Serious: Yes (Hospitalization)
  Sender: FDA-Public Use
  Company Number: 1754125

PATIENT
  Age: 59 Year
  Sex: Male

DRUGS (12)
  1. CARBOPLATIN [Suspect]
     Indication: LUNG ADENOCARCINOMA
     Dosage: 1 DEPENDS ON CYCLE (UNKNOWN) INTRAVENOUS (NOT OTHERWISE SPECIFED)
     Route: 042
     Dates: start: 20111209, end: 20111230
  2. ZOMETA [Suspect]
     Indication: PRODUCT USED FOR UNKNOWN INDICATION
     Dosage: 1 DF DOSAGE FORM (UNKNOWN) INTRAVENOUS (NOT OTHERWISE SPECIFIED)
     Route: 042
     Dates: start: 20111209, end: 20111209
  3. ALIMTA [Suspect]
     Indication: LUNG ADENOCARCINOMA
     Dosage: 1 DEPENDS ON CYCLE (UNKNOWN) INTRAVENOUS (NOT OTHERWISE SPECIFIED)
     Route: 042
     Dates: start: 20111209
  4. OXYCONTIN [Concomitant]
  5. KARDEGIC [Suspect]
  6. METOPROLOL [Concomitant]
  7. PANTOPRAZOLE [Concomitant]
  8. TAHOR [Concomitant]
  9. ATARAX /00058401/ [Concomitant]
  10. FORLAX /00754501/ [Suspect]
  11. DIPROSONE /00008504/ [Concomitant]
  12. EPREX [Concomitant]

REACTIONS (1)
  - Osteonecrosis [None]
